APPROVED DRUG PRODUCT: BAMATE
Active Ingredient: MEPROBAMATE
Strength: 400MG
Dosage Form/Route: TABLET;ORAL
Application: A080380 | Product #002
Applicant: ALRA LABORATORIES INC
Approved: Approved Prior to Jan 1, 1982 | RLD: No | RS: No | Type: DISCN